FAERS Safety Report 12924129 (Version 1)
Quarter: 2016Q4

REPORT INFORMATION
  Report Type: Spontaneous
  Country: US (occurrence: US)
  Receive Date: 20161109
  Receipt Date: 20161109
  Transmission Date: 20170207
  Serious: No
  Sender: FDA-Public Use
  Company Number: None

PATIENT
  Age: 61 Year
  Sex: Female
  Weight: 45.9 kg

DRUGS (1)
  1. OXALIPLATIN 100MG/20ML VIAL TEVA [Suspect]
     Active Substance: OXALIPLATIN
     Dosage: 122MG Q 14 DAYS IVPB
     Dates: start: 20151027, end: 20160212

REACTIONS (4)
  - Flushing [None]
  - Diarrhoea [None]
  - Blood pressure systolic decreased [None]
  - Pruritus [None]

NARRATIVE: CASE EVENT DATE: 20160212
